FAERS Safety Report 25761943 (Version 1)
Quarter: 2025Q3

REPORT INFORMATION
  Report Type: Spontaneous
  Country: CA (occurrence: CA)
  Receive Date: 20250904
  Receipt Date: 20250904
  Transmission Date: 20251021
  Serious: Yes (Life-Threatening, Other)
  Sender: TEVA
  Company Number: CA-TEVA-VS-3366874

PATIENT
  Age: 20 Year
  Sex: Male

DRUGS (8)
  1. OLANZAPINE [Interacting]
     Active Substance: OLANZAPINE
     Indication: Schizophrenia
     Route: 065
  2. VALPROATE [Suspect]
     Active Substance: VALPROIC ACID
     Indication: Schizophrenia
     Route: 065
  3. AMISULPRIDE [Concomitant]
     Active Substance: AMISULPRIDE
     Indication: Schizophrenia
  4. CLONAZEPAM [Concomitant]
     Active Substance: CLONAZEPAM
     Indication: Schizophrenia
  5. LAMOTRIGINE [Concomitant]
     Active Substance: LAMOTRIGINE
     Indication: Schizophrenia
  6. CLOZAPINE [Interacting]
     Active Substance: CLOZAPINE
     Indication: Schizophrenia
     Route: 065
  7. CLOZAPINE [Interacting]
     Active Substance: CLOZAPINE
     Indication: Schizophrenia
     Route: 065
  8. CLOZAPINE [Interacting]
     Active Substance: CLOZAPINE
     Indication: Schizophrenia
     Dosage: DOSE TITRATED-UP
     Route: 065

REACTIONS (5)
  - Myocarditis [Recovered/Resolved]
  - Salivary hypersecretion [Unknown]
  - Tachycardia [Unknown]
  - Drug interaction [Unknown]
  - Weight increased [Unknown]
